FAERS Safety Report 10867646 (Version 2)
Quarter: 2015Q2

REPORT INFORMATION
  Report Type: Spontaneous
  Country: TW (occurrence: TW)
  Receive Date: 20150225
  Receipt Date: 20150522
  Transmission Date: 20150821
  Serious: Yes (Hospitalization, Other)
  Sender: FDA-Public Use
  Company Number: TW-009507513-1502TWN007602

PATIENT
  Age: 72 Year
  Sex: Female

DRUGS (3)
  1. MAGNESIUM OXIDE. [Concomitant]
     Active Substance: MAGNESIUM OXIDE
     Dosage: UNK, FOUR TIMES A DAY
     Route: 048
  2. PANAMAX [Concomitant]
     Active Substance: ACETAMINOPHEN
     Dosage: UNK, FOUR TIMES A DAY
     Route: 048
  3. FOSAMAX PLUS D [Suspect]
     Active Substance: ALENDRONATE SODIUM\CHOLECALCIFEROL
     Indication: OSTEOPOROSIS
     Dosage: 1 TABLET (STRENGTH: 70MG/2800 IU), ONCE WEEKLY
     Route: 048

REACTIONS (8)
  - Swelling [Unknown]
  - Scapula fracture [Recovered/Resolved]
  - Open reduction of fracture [Recovered/Resolved]
  - Joint contracture [Recovered/Resolved]
  - Arthralgia [Unknown]
  - Musculoskeletal pain [Recovered/Resolved]
  - Fall [Unknown]
  - Joint range of motion decreased [Unknown]

NARRATIVE: CASE EVENT DATE: 20141010
